FAERS Safety Report 8893196 (Version 1)
Quarter: 2012Q4

REPORT INFORMATION
  Report Type: 
  Country: US (occurrence: US)
  Receive Date: 20121107
  Receipt Date: 20121107
  Transmission Date: 20130627
  Serious: No
  Sender: FDA-Public Use
  Company Number: US-AMGEN-USASP2011052542

PATIENT
  Age: 35 Year
  Weight: 74.83 kg

DRUGS (1)
  1. ENBREL [Suspect]
     Indication: PSORIATIC ARTHROPATHY
     Dosage: 50 mg, q2wk
     Route: 058
     Dates: start: 20100404

REACTIONS (3)
  - Erythema [Unknown]
  - Ocular hyperaemia [Unknown]
  - Rash [Unknown]
